FAERS Safety Report 8070771-4 (Version None)
Quarter: 2012Q1

REPORT INFORMATION
  Report Type: 
  Country: None (occurrence: None)
  Receive Date: 20120125
  Receipt Date: 20120112
  Transmission Date: 20120608
  Serious: Yes (Other)
  Sender: FDA-Public Use
  Company Number: FR-ELI_LILLY_AND_COMPANY-FR201109006294

PATIENT
  Age: 40 Year
  Sex: Female
  Weight: 80 kg

DRUGS (3)
  1. ZYPREXA [Suspect]
     Indication: BIPOLAR DISORDER
     Dosage: 15 MG, QD
     Route: 048
     Dates: start: 20040101
  2. LITHIUM CARBONATE [Concomitant]
     Indication: BIPOLAR DISORDER
     Dosage: 400 MG, TID
     Route: 048
     Dates: start: 20010101
  3. CYMBALTA [Suspect]
     Indication: DEPRESSION
     Dosage: 120 MG, QD
     Route: 048
     Dates: start: 20101220, end: 20110831

REACTIONS (2)
  - ANAEMIA [None]
  - VAGINAL HAEMORRHAGE [None]
